FAERS Safety Report 14264067 (Version 1)
Quarter: 2017Q4

REPORT INFORMATION
  Report Type: Spontaneous
  Country: CA (occurrence: CA)
  Receive Date: 20171208
  Receipt Date: 20171208
  Transmission Date: 20180321
  Serious: Yes (Death, Hospitalization, Other)
  Sender: FDA-Public Use
  Company Number: CA-NAPPMUNDI-CAN-2017-0008173

PATIENT
  Age: 69 Year
  Sex: Male

DRUGS (13)
  1. GUAIFENESIN W/SALBUTAMOL [Concomitant]
     Active Substance: ALBUTEROL\GUAIFENESIN
     Indication: PRODUCT USED FOR UNKNOWN INDICATION
     Route: 065
  2. LIPITOR [Concomitant]
     Active Substance: ATORVASTATIN CALCIUM
     Indication: PRODUCT USED FOR UNKNOWN INDICATION
     Route: 065
  3. PANTOPRAZOLE SODIUM. [Concomitant]
     Active Substance: PANTOPRAZOLE SODIUM
     Indication: PRODUCT USED FOR UNKNOWN INDICATION
     Route: 065
  4. MORPHINE SULFATE. [Suspect]
     Active Substance: MORPHINE SULFATE
     Indication: ABDOMINAL PAIN
     Dosage: 5 MG, Q4H
     Route: 048
  5. CEFUROXIME AXETIL. [Concomitant]
     Active Substance: CEFUROXIME AXETIL
     Indication: PRODUCT USED FOR UNKNOWN INDICATION
     Route: 065
  6. LACTULOSE. [Concomitant]
     Active Substance: LACTULOSE
     Indication: BLOOD PRESSURE MEASUREMENT
     Route: 065
  7. TRAZODONE [Concomitant]
     Active Substance: TRAZODONE HYDROCHLORIDE
     Indication: PRODUCT USED FOR UNKNOWN INDICATION
     Route: 065
  8. ASA [Concomitant]
     Active Substance: ASPIRIN
     Indication: PRODUCT USED FOR UNKNOWN INDICATION
     Route: 065
  9. MIRTAZAPINE. [Concomitant]
     Active Substance: MIRTAZAPINE
     Indication: PRODUCT USED FOR UNKNOWN INDICATION
     Route: 065
  10. CANDESARTAN. [Concomitant]
     Active Substance: CANDESARTAN
     Indication: PRODUCT USED FOR UNKNOWN INDICATION
     Dosage: 8 MG, DAILY
     Route: 065
  11. SOTALOL. [Concomitant]
     Active Substance: SOTALOL
     Indication: PRODUCT USED FOR UNKNOWN INDICATION
     Dosage: 1 DF, BID
     Route: 065
  12. ADVAIR HFA [Concomitant]
     Active Substance: FLUTICASONE PROPIONATE\SALMETEROL XINAFOATE
     Indication: PRODUCT USED FOR UNKNOWN INDICATION
     Route: 065
  13. ATENOLOL. [Concomitant]
     Active Substance: ATENOLOL
     Indication: PRODUCT USED FOR UNKNOWN INDICATION
     Route: 065

REACTIONS (36)
  - Splenomegaly [Fatal]
  - Haemoglobin decreased [Fatal]
  - Influenza [Fatal]
  - Contusion [Fatal]
  - Decreased appetite [Fatal]
  - Dysphonia [Fatal]
  - Faeces hard [Fatal]
  - Pyrexia [Fatal]
  - Tremor [Fatal]
  - Death [Fatal]
  - Aneurysm [Fatal]
  - Constipation [Fatal]
  - Malaise [Fatal]
  - Lung abscess [Fatal]
  - Blood count abnormal [Fatal]
  - Dyspnoea [Fatal]
  - Diarrhoea [Fatal]
  - Cholelithiasis [Fatal]
  - Cough [Fatal]
  - Asthenia [Fatal]
  - Gastric dilatation [Fatal]
  - General physical condition abnormal [Fatal]
  - Muscular weakness [Fatal]
  - Somnolence [Fatal]
  - Platelet count decreased [Fatal]
  - Bronchitis [Fatal]
  - White blood cell count increased [Fatal]
  - Back pain [Fatal]
  - Feeling abnormal [Fatal]
  - Abdominal pain upper [Fatal]
  - Pneumonia [Fatal]
  - Genital hypoaesthesia [Fatal]
  - Heart rate increased [Fatal]
  - Weight decreased [Fatal]
  - Drug ineffective [Fatal]
  - Abdominal pain [Fatal]
